FAERS Safety Report 21935916 (Version 2)
Quarter: 2023Q1

REPORT INFORMATION
  Report Type: Spontaneous
  Country: IT (occurrence: IT)
  Receive Date: 20230201
  Receipt Date: 20230206
  Transmission Date: 20230417
  Serious: Yes (Other)
  Sender: FDA-Public Use
  Company Number: IT-ROCHE-3269142

PATIENT
  Age: 65 Year
  Sex: Female
  Weight: 42 kg

DRUGS (9)
  1. DEXAMETHASONE [Suspect]
     Active Substance: DEXAMETHASONE
     Indication: Lymphoma transformation
     Route: 065
     Dates: start: 20220705, end: 20220727
  2. CISPLATIN [Suspect]
     Active Substance: CISPLATIN
     Indication: Lymphoma transformation
     Route: 065
     Dates: start: 20220705, end: 20220727
  3. CYTARABINE [Suspect]
     Active Substance: CYTARABINE
     Indication: Lymphoma transformation
     Route: 065
     Dates: start: 20220705, end: 20220727
  4. POLATUZUMAB VEDOTIN [Suspect]
     Active Substance: POLATUZUMAB VEDOTIN
     Indication: Lymphoma transformation
     Route: 065
     Dates: start: 20221012, end: 20221216
  5. POLATUZUMAB VEDOTIN [Suspect]
     Active Substance: POLATUZUMAB VEDOTIN
     Route: 042
  6. RITUXIMAB [Suspect]
     Active Substance: RITUXIMAB
     Indication: Lymphoma transformation
     Route: 065
     Dates: start: 20220222, end: 20220315
  7. RITUXIMAB [Suspect]
     Active Substance: RITUXIMAB
     Route: 065
     Dates: start: 20220705, end: 20220727
  8. RITUXIMAB [Suspect]
     Active Substance: RITUXIMAB
     Route: 065
     Dates: start: 20221012, end: 20221216
  9. RITUXIMAB [Suspect]
     Active Substance: RITUXIMAB
     Route: 042
     Dates: start: 20221018

REACTIONS (2)
  - Disease progression [Unknown]
  - Diarrhoea [Recovered/Resolved]

NARRATIVE: CASE EVENT DATE: 20221214
